FAERS Safety Report 8587206-5 (Version None)
Quarter: 2012Q3

REPORT INFORMATION
  Report Type: 
  Country: None (occurrence: None)
  Receive Date: 20120810
  Receipt Date: 20110929
  Transmission Date: 20120928
  Serious: No
  Sender: FDA-Public Use
  Company Number: US-ASTRAZENECA-2011SE32427

PATIENT
  Age: 62 Year
  Sex: Female

DRUGS (4)
  1. BENICAR [Concomitant]
  2. LYRICA [Concomitant]
     Indication: MUSCULOSKELETAL STIFFNESS
  3. ARIMIDEX [Suspect]
     Route: 048
  4. CRESTOR [Suspect]
     Route: 048

REACTIONS (9)
  - INTERVERTEBRAL DISC PROTRUSION [None]
  - ARTHRALGIA [None]
  - WEIGHT INCREASED [None]
  - RASH [None]
  - ALOPECIA [None]
  - ANXIETY [None]
  - BONE PAIN [None]
  - TINEA MANUUM [None]
  - MUSCULOSKELETAL STIFFNESS [None]
